FAERS Safety Report 6473136-1 (Version None)
Quarter: 2009Q4

REPORT INFORMATION
  Report Type: 
  Country: None (occurrence: None)
  Receive Date: 20091204
  Receipt Date: 20090122
  Transmission Date: 20100525
  Serious: Yes (Other)
  Sender: FDA-Public Use
  Company Number: JP-ELI_LILLY_AND_COMPANY-JP200807000586

PATIENT
  Sex: Male
  Weight: 49 kg

DRUGS (9)
  1. PEMETREXED [Suspect]
     Indication: PLEURAL MESOTHELIOMA MALIGNANT
     Dosage: 750 MG, UNK
     Route: 042
     Dates: start: 20070608, end: 20070629
  2. PEMETREXED [Suspect]
     Dosage: 560 MG, UNK
     Route: 042
     Dates: start: 20070726, end: 20070911
  3. CISPLATIN [Suspect]
     Indication: PLEURAL MESOTHELIOMA MALIGNANT
     Dosage: 90 MG, UNK
     Route: 042
     Dates: start: 20070608, end: 20070629
  4. CISPLATIN [Suspect]
     Dosage: 75 MG, UNK
     Route: 042
     Dates: start: 20070726, end: 20070911
  5. PANVITAN [Concomitant]
     Dosage: 1 G, DAILY (1/D)
     Route: 048
     Dates: start: 20070530, end: 20071205
  6. METHYCOBAL [Concomitant]
     Dosage: 1 MG, UNK
     Route: 030
     Dates: start: 20070530, end: 20071005
  7. MAGMITT [Concomitant]
     Indication: CONSTIPATION
     Dosage: 2 G, DAILY (1/D)
     Route: 048
  8. PURSENNID [Concomitant]
     Indication: CONSTIPATION
     Dosage: 24 MG, DAILY (1/D)
     Route: 048
  9. MOBIC [Concomitant]
     Indication: PROPHYLAXIS
     Dosage: 10 MG, DAILY (1/D)
     Route: 048
     Dates: start: 20070823, end: 20070920

REACTIONS (1)
  - ANAEMIA [None]
